FAERS Safety Report 17346962 (Version 1)
Quarter: 2020Q1

REPORT INFORMATION
  Report Type: Spontaneous
  Country: GB (occurrence: GB)
  Receive Date: 20200130
  Receipt Date: 20200130
  Transmission Date: 20200409
  Serious: Yes (Hospitalization)
  Sender: FDA-Public Use
  Company Number: NVSC2020GB018918

PATIENT
  Sex: Female

DRUGS (2)
  1. AMLODIPINE [Concomitant]
     Active Substance: AMLODIPINE BESYLATE
     Indication: PRODUCT USED FOR UNKNOWN INDICATION
     Dosage: I WAS DOUBLED UP ON AMLODIPINE, USED TO TAKE ONE TABLET AND NOW I TAKE TWO A DAY
     Route: 048
  2. METFORMIN [Suspect]
     Active Substance: METFORMIN HYDROCHLORIDE
     Indication: PRODUCT USED FOR UNKNOWN INDICATION
     Dosage: TODAY I HAD TAKEN FOUR METFORMIN, TWO IN THE MORNING AND TWO IN THE EVENING
     Route: 048

REACTIONS (4)
  - Anxiety [Unknown]
  - Nasopharyngitis [Unknown]
  - Constipation [Unknown]
  - Gastrointestinal carcinoma [Unknown]
